FAERS Safety Report 9850600 (Version 1)
Quarter: 2014Q1

REPORT INFORMATION
  Report Type: Spontaneous
  Country: DE (occurrence: DE)
  Receive Date: 20140128
  Receipt Date: 20140128
  Transmission Date: 20141002
  Serious: Yes (Hospitalization)
  Sender: FDA-Public Use
  Company Number: DE-TEVA-457512GER

PATIENT
  Age: 71 Year
  Sex: Female
  Weight: 55 kg

DRUGS (5)
  1. AMIODARONE 200MG [Suspect]
     Indication: ARRHYTHMIA
     Dosage: 200 MILLIGRAM DAILY;
     Route: 048
  2. PRADAXA 150 [Suspect]
     Indication: ARRHYTHMIA
     Dosage: 300 MILLIGRAM DAILY;
     Route: 048
  3. METOPROLOL 95 [Concomitant]
     Indication: HYPERTENSION
     Dosage: .5 DOSAGE FORMS DAILY;
  4. RAMIPRIL 5 [Concomitant]
     Indication: HYPERTENSION
  5. MOXONIDIN 0,2 [Concomitant]
     Indication: HYPERTENSION

REACTIONS (2)
  - Atrial thrombosis [Unknown]
  - International normalised ratio increased [Unknown]
